FAERS Safety Report 22285277 (Version 1)
Quarter: 2023Q2

REPORT INFORMATION
  Report Type: Spontaneous
  Country: GB (occurrence: GB)
  Receive Date: 20230504
  Receipt Date: 20230504
  Transmission Date: 20230721
  Serious: Yes (Hospitalization)
  Sender: FDA-Public Use
  Company Number: GB-MHRA-MED-202304281931218730-PMCVG

PATIENT
  Age: 78 Year
  Sex: Female
  Weight: 70 kg

DRUGS (2)
  1. GADOBUTROL [Suspect]
     Active Substance: GADOBUTROL
     Indication: Magnetic resonance imaging abnormal
     Dosage: 7 ML, ONCE
     Dates: start: 20230428, end: 20230428
  2. BUTYLSCOPOLAMINE BROMIDE [Concomitant]
     Active Substance: BUTYLSCOPOLAMINE BROMIDE
     Indication: Magnetic resonance imaging abnormal
     Dosage: UNK
     Dates: start: 20230428, end: 20230428

REACTIONS (4)
  - Pruritus [Unknown]
  - Erythema [Not Recovered/Not Resolved]
  - Hypotension [Recovered/Resolved]
  - Oxygen saturation [Recovered/Resolved]

NARRATIVE: CASE EVENT DATE: 20230428
